FAERS Safety Report 7357081-5 (Version None)
Quarter: 2011Q1

REPORT INFORMATION
  Report Type: 
  Country: None (occurrence: None)
  Receive Date: 20110317
  Receipt Date: 20110121
  Transmission Date: 20110831
  Serious: Yes (Hospitalization)
  Sender: FDA-Public Use
  Company Number: US-BAYER-2011-023387

PATIENT
  Sex: Female

DRUGS (2)
  1. YASMIN [Suspect]
     Indication: MENSTRUATION IRREGULAR
     Dosage: UNK, QD
     Dates: start: 20020101, end: 20080101
  2. LEVAQUIN [Concomitant]
     Dosage: UNK
     Dates: start: 20051227

REACTIONS (1)
  - ABDOMINAL PAIN [None]
